FAERS Safety Report 5551312-X (Version None)
Quarter: 2007Q4

REPORT INFORMATION
  Report Type: 
  Country: None (occurrence: None)
  Receive Date: 20071212
  Receipt Date: 20070529
  Transmission Date: 20080405
  Serious: No
  Sender: FDA-Public Use
  Company Number: US-AMGEN-KDL218250

PATIENT
  Sex: Male

DRUGS (8)
  1. ENBREL [Suspect]
     Indication: RHEUMATOID ARTHRITIS
     Route: 058
     Dates: start: 20020101
  2. ENBREL [Suspect]
     Indication: OSTEOARTHRITIS
  3. PREDNISONE [Suspect]
  4. LUNESTA [Concomitant]
  5. OXYCODONE HCL [Concomitant]
  6. FLOMAX [Concomitant]
  7. METHOTREXATE [Concomitant]
  8. FOLIC ACID [Concomitant]

REACTIONS (1)
  - HERPES ZOSTER [None]
